FAERS Safety Report 8620779-2 (Version None)
Quarter: 2012Q3

REPORT INFORMATION
  Report Type: 
  Country: None (occurrence: None)
  Receive Date: 20120824
  Receipt Date: 20111005
  Transmission Date: 20120928
  Serious: Yes (Death, Hospitalization)
  Sender: FDA-Public Use
  Company Number: GB-ROCHE-1002446

PATIENT
  Age: 65 Year
  Sex: Female

DRUGS (28)
  1. DIAZEPAM [Concomitant]
     Indication: AGITATION
     Route: 048
  2. ISOSORBIDE MONONITRATE [Concomitant]
     Route: 048
  3. NOVOLOG MIX 70/30 [Concomitant]
     Route: 058
  4. ASPIRIN [Concomitant]
     Route: 048
  5. ONDANSETRON [Concomitant]
     Route: 048
  6. MABTHERA [Suspect]
     Route: 042
     Dates: start: 20090601
  7. TRAMADOL HCL [Concomitant]
     Route: 048
  8. MABTHERA [Suspect]
     Route: 042
     Dates: start: 20101201
  9. AMLODIPINE [Concomitant]
     Route: 048
  10. NITROGLYCERIN [Concomitant]
     Dosage: AS NECESSARY
  11. METHOTREXATE [Concomitant]
     Route: 048
  12. ACETAMINOPHEN [Concomitant]
     Route: 048
  13. ALBUTEROL SULATE [Concomitant]
     Dosage: AS NECESSARY
  14. DOXYCYCLINE HCL [Concomitant]
     Route: 048
  15. FLUOXETINE HCL [Concomitant]
     Route: 048
  16. FOLIC ACID [Concomitant]
     Route: 048
  17. NICORANDIL [Concomitant]
     Route: 048
  18. NYSTATIN [Concomitant]
     Route: 048
  19. MABTHERA [Suspect]
     Indication: RHEUMATOID ARTHRITIS
     Route: 042
     Dates: start: 20080501
  20. ASACOL [Concomitant]
     Route: 048
  21. CYCLIZINE [Concomitant]
     Route: 048
  22. FUROSEMIDE [Concomitant]
     Route: 048
  23. FLUTICASONE PROPIONATE/SALMETEROL [Concomitant]
  24. SIMVASTATIN [Concomitant]
     Route: 048
  25. SCOPOLAMINE [Concomitant]
  26. DICLOFENAC SODIUM [Concomitant]
     Route: 048
  27. PREDNISOLONE [Concomitant]
     Route: 048
  28. RANITIDINE [Concomitant]
     Route: 048

REACTIONS (19)
  - HEADACHE [None]
  - OEDEMA [None]
  - PRODUCTIVE COUGH [None]
  - URINE ODOUR ABNORMAL [None]
  - CLOSTRIDIAL INFECTION [None]
  - PYREXIA [None]
  - CANDIDIASIS [None]
  - BILIARY DRAINAGE [None]
  - VOMITING [None]
  - SEPSIS [None]
  - CONFUSIONAL STATE [None]
  - FREQUENT BOWEL MOVEMENTS [None]
  - ABDOMINAL PAIN UPPER [None]
  - CHILLS [None]
  - BACK PAIN [None]
  - LOWER RESPIRATORY TRACT INFECTION [None]
  - INTERVERTEBRAL DISCITIS [None]
  - COLONIC FISTULA [None]
  - HALLUCINATION [None]
